FAERS Safety Report 12421211 (Version 3)
Quarter: 2016Q3

REPORT INFORMATION
  Report Type: Spontaneous
  Country: IT (occurrence: IT)
  Receive Date: 20160531
  Receipt Date: 20160729
  Transmission Date: 20161109
  Serious: Yes (Other)
  Sender: FDA-Public Use
  Company Number: IT-MYLANLABS-2016M1021978

PATIENT

DRUGS (6)
  1. PRASTEROL [Concomitant]
     Indication: PRODUCT USED FOR UNKNOWN INDICATION
     Route: 048
  2. EUTIROX [Concomitant]
     Active Substance: LEVOTHYROXINE SODIUM
     Indication: PRODUCT USED FOR UNKNOWN INDICATION
     Route: 048
  3. OLANZAPINE MYLAN 2.5 MG FILM-COATED TABLETS [Suspect]
     Active Substance: OLANZAPINE
     Indication: PSYCHOTIC DISORDER
     Dosage: UNK
     Route: 048
     Dates: start: 20160405, end: 20160502
  4. OLANZAPINE TEVA [Suspect]
     Active Substance: OLANZAPINE
     Dosage: UNK
  5. OLANZAPINE MYLAN 2.5 MG FILM-COATED TABLETS [Suspect]
     Active Substance: OLANZAPINE
     Dosage: UNK
  6. OLANZAPINE TEVA [Suspect]
     Active Substance: OLANZAPINE
     Indication: PSYCHOTIC DISORDER
     Dosage: UNK
     Route: 048
     Dates: start: 20160405, end: 20160502

REACTIONS (1)
  - Drug ineffective [Recovered/Resolved]

NARRATIVE: CASE EVENT DATE: 20160405
